FAERS Safety Report 13806627 (Version 1)
Quarter: 2017Q3

REPORT INFORMATION
  Report Type: Spontaneous
  Country: FR (occurrence: FR)
  Receive Date: 20170728
  Receipt Date: 20170728
  Transmission Date: 20171127
  Serious: Yes (Hospitalization, Other)
  Sender: FDA-Public Use
  Company Number: FR-PFIZER INC-2017323166

PATIENT
  Age: 78 Year
  Sex: Male

DRUGS (9)
  1. TAHOR [Suspect]
     Active Substance: ATORVASTATIN CALCIUM
     Indication: HYPERCHOLESTEROLAEMIA
     Dosage: 40 MG, 1X/DAY
     Route: 048
     Dates: start: 2009, end: 20170711
  2. DAFALGAN [Suspect]
     Active Substance: ACETAMINOPHEN
     Indication: PAIN
     Dosage: 1 G, 3X/DAY
     Route: 048
  3. BRONCHOKOD [Suspect]
     Active Substance: CARBOCYSTEINE
     Dosage: UNK
  4. RINOCLENIL [Suspect]
     Active Substance: BECLOMETHASONE
     Dosage: UNK
     Route: 045
  5. ISOXAN /00310701/ [Concomitant]
     Dosage: UNK
  6. ESOMEPRAZOLE MAGNESIUM. [Suspect]
     Active Substance: ESOMEPRAZOLE MAGNESIUM
     Dosage: UNK, 1X/DAY
     Route: 048
  7. COVERAM [Suspect]
     Active Substance: AMLODIPINE\PERINDOPRIL
     Indication: HYPERTENSION
     Dosage: 1 DF (10MG/5MG), 1X/DAY
     Route: 048
  8. TEMERIT DUO [Suspect]
     Active Substance: HYDROCHLOROTHIAZIDE\NEBIVOLOL HYDROCHLORIDE
     Indication: HYPERTENSION
     Dosage: 1 DF (5MG/12.5MG), 1X/DAY
     Route: 048
  9. KARDEGIC [Suspect]
     Active Substance: ASPIRIN LYSINE
     Indication: MYOCARDIAL INFARCTION
     Dosage: 75 MG, 1X/DAY
     Route: 048

REACTIONS (12)
  - Blood sodium decreased [Unknown]
  - Haemoglobin decreased [Unknown]
  - Gait disturbance [Unknown]
  - Interstitial lung disease [Not Recovered/Not Resolved]
  - Confusional state [Unknown]
  - Pallor [Recovered/Resolved]
  - Pulmonary mass [Unknown]
  - Urinary retention [Recovered/Resolved]
  - Neoplasm recurrence [Unknown]
  - Antibody test abnormal [Not Recovered/Not Resolved]
  - Haematuria [Recovered/Resolved]
  - Muscle spasms [Unknown]

NARRATIVE: CASE EVENT DATE: 201701
